FAERS Safety Report 4839336-9 (Version None)
Quarter: 2005Q4

REPORT INFORMATION
  Report Type: 
  Country: None (occurrence: None)
  Receive Date: 20051129
  Receipt Date: 20050118
  Transmission Date: 20060501
  Serious: No
  Sender: FDA-Public Use
  Company Number: US-GLAXOSMITHKLINE-A0541139A

PATIENT
  Age: 64 Year
  Sex: Female

DRUGS (7)
  1. WELLBUTRIN SR [Suspect]
     Indication: DEPRESSION
     Dosage: 150MG PER DAY
     Route: 048
  2. LOPRESSOR [Concomitant]
  3. ZETIA [Concomitant]
  4. ELAVIL [Concomitant]
  5. NEXIUM [Concomitant]
  6. DETROL LA [Concomitant]
  7. FORTEO [Concomitant]

REACTIONS (2)
  - MEDICATION ERROR [None]
  - PHARMACEUTICAL PRODUCT COMPLAINT [None]
